FAERS Safety Report 5570023-8 (Version None)
Quarter: 2007Q4

REPORT INFORMATION
  Report Type: 
  Country: None (occurrence: None)
  Receive Date: 20071218
  Receipt Date: 20071204
  Transmission Date: 20080405
  Serious: Yes (Death, Life-Threatening)
  Sender: FDA-Public Use
  Company Number: 2007US003049

PATIENT
  Age: 65 Year
  Sex: Male

DRUGS (1)
  1. AMBISOME [Suspect]
     Indication: DRUG USE FOR UNKNOWN INDICATION
     Dosage: 50 MG, IV NOS
     Route: 042
     Dates: start: 20070824, end: 20070827

REACTIONS (5)
  - ANAEMIA [None]
  - HYPERCAPNIA [None]
  - HYPOKALAEMIA [None]
  - PLATELET COUNT DECREASED [None]
  - RENAL DISORDER [None]
